FAERS Safety Report 5282636-1 (Version None)
Quarter: 2007Q1

REPORT INFORMATION
  Report Type: 
  Country: None (occurrence: None)
  Receive Date: 20070326
  Receipt Date: 20070314
  Transmission Date: 20070707
  Serious: Yes (Hospitalization)
  Sender: FDA-Public Use
  Company Number: 6031069

PATIENT
  Age: 35 Year
  Sex: Male

DRUGS (1)
  1. DETENSIEL (10 MG, TABLET) (BISOPROLOL FUMARATE) [Suspect]
     Indication: HYPERTENSION
     Route: 048
     Dates: start: 20050115, end: 20060415

REACTIONS (5)
  - BLOOD CREATINE PHOSPHOKINASE INCREASED [None]
  - MUSCLE SPASMS [None]
  - MUSCULAR WEAKNESS [None]
  - MYALGIA [None]
  - VERTIGO [None]
